FAERS Safety Report 17646194 (Version 2)
Quarter: 2020Q2

REPORT INFORMATION
  Report Type: Spontaneous
  Country: TR (occurrence: TR)
  Receive Date: 20200408
  Receipt Date: 20200415
  Transmission Date: 20200713
  Serious: Yes (Other)
  Sender: FDA-Public Use
  Company Number: TR-PFIZER INC-2020141498

PATIENT
  Weight: 3 kg

DRUGS (6)
  1. ALPHA-METHYLDOPA [Suspect]
     Active Substance: METHYLDOPA
     Indication: BLOOD PRESSURE INCREASED
     Dosage: 750 MG, DAILY
     Route: 064
  2. METHYLPREDNISOLONE ACETATE. [Suspect]
     Active Substance: METHYLPREDNISOLONE ACETATE
     Indication: IMMUNOSUPPRESSANT DRUG THERAPY
     Dosage: 5 MG, DAILY
     Route: 064
  3. PROGRAF [Suspect]
     Active Substance: TACROLIMUS
     Indication: IMMUNOSUPPRESSANT DRUG THERAPY
     Dosage: 3 MG, DAILY
     Route: 064
  4. PROGRAF [Suspect]
     Active Substance: TACROLIMUS
     Dosage: UNK, DAILY (AVERAGE DOSE OF 4.57, 9.53 AND 9 MG/DAY IN EARLY, MID AND LATE PREGNANCY, RESPECTIVELY)
     Route: 064
  5. AZATHIOPRINE. [Suspect]
     Active Substance: AZATHIOPRINE
     Indication: IMMUNOSUPPRESSANT DRUG THERAPY
     Dosage: 75 MG, DAILY
     Route: 064
  6. ALPHA-METHYLDOPA [Suspect]
     Active Substance: METHYLDOPA
     Indication: HYPERTENSION

REACTIONS (4)
  - Premature baby [Unknown]
  - Off label use [Unknown]
  - Maternal exposure during pregnancy [Unknown]
  - Product use in unapproved indication [Unknown]
